FAERS Safety Report 17675052 (Version 1)
Quarter: 2020Q2

REPORT INFORMATION
  Report Type: Spontaneous
  Country: GB (occurrence: GB)
  Receive Date: 20200416
  Receipt Date: 20200416
  Transmission Date: 20200714
  Serious: Yes (Hospitalization)
  Sender: FDA-Public Use
  Company Number: GB-TEVA-2020-GB-1224723

PATIENT
  Age: 6 Year
  Sex: Female

DRUGS (4)
  1. KETAMINE [Concomitant]
     Active Substance: KETAMINE
     Route: 065
  2. DEXAMETHASONE. [Suspect]
     Active Substance: DEXAMETHASONE
     Indication: ACUTE PROMYELOCYTIC LEUKAEMIA
     Route: 065
  3. ALL TRANS-RETINOIC ACID [Suspect]
     Active Substance: TRETINOIN
     Indication: ACUTE PROMYELOCYTIC LEUKAEMIA
     Route: 065
  4. IDARUBICIN [Suspect]
     Active Substance: IDARUBICIN
     Indication: ACUTE PROMYELOCYTIC LEUKAEMIA
     Route: 065

REACTIONS (1)
  - Neutropenia [Unknown]
